FAERS Safety Report 15846300 (Version 2)
Quarter: 2019Q1

REPORT INFORMATION
  Report Type: Report from Study
  Country: GB (occurrence: GB)
  Receive Date: 20190120
  Receipt Date: 20190203
  Transmission Date: 20190417
  Serious: Yes (Death, Hospitalization, Other)
  Sender: FDA-Public Use
  Company Number: GB-CELLTRION INC.-2019GB017912

PATIENT

DRUGS (5)
  1. TRUXIMA [Suspect]
     Active Substance: RITUXIMAB-ABBS
     Indication: DIFFUSE LARGE B-CELL LYMPHOMA
     Dosage: 700 MG
     Route: 042
     Dates: start: 20180504, end: 20180928
  2. FLUCONAZOLE. [Concomitant]
     Active Substance: FLUCONAZOLE
     Dosage: 50 MG, BD
  3. PERINDOPRIL ERBUMINE. [Concomitant]
     Active Substance: PERINDOPRIL ERBUMINE
     Dosage: 40 MG, OD
  4. TRANEXAMIC ACID. [Concomitant]
     Active Substance: TRANEXAMIC ACID
     Dosage: 500 MG, TDS
  5. CALCIPOTRIOL/BETAMETHASONE SANDOZ [Concomitant]
     Dosage: UNK

REACTIONS (6)
  - Dysphagia [Unknown]
  - Cranial nerve paralysis [Unknown]
  - Diplopia [Unknown]
  - Balance disorder [Unknown]
  - Central nervous system lymphoma [Fatal]
  - Horner^s syndrome [Unknown]

NARRATIVE: CASE EVENT DATE: 20181115
